FAERS Safety Report 5580136-2 (Version None)
Quarter: 2007Q4

REPORT INFORMATION
  Report Type: 
  Country: None (occurrence: None)
  Receive Date: 20071227
  Receipt Date: 20071227
  Transmission Date: 20080405
  Serious: Yes (Hospitalization)
  Sender: FDA-Public Use
  Company Number: None

PATIENT
  Age: 66 Year
  Sex: Male
  Weight: 156.5 kg

DRUGS (14)
  1. KETOCONAZOLE [Suspect]
     Indication: PROSTATE CANCER
     Dosage: 400MG TID PO
     Route: 048
     Dates: start: 20071116, end: 20071226
  2. REVLIMID [Suspect]
     Indication: PROSTATE CANCER
     Dosage: 25MG DAILY PO
     Route: 048
     Dates: start: 20071116, end: 20071226
  3. COUMADIN [Concomitant]
  4. OXYCODONE HCL-OXYCONTIN [Concomitant]
  5. VENLAFAXINE HCL-EFFEXOR XR [Concomitant]
  6. OXYCODONE HCL/ACETAMINOPHEN-PERCOCET [Concomitant]
  7. PROCHLORPERAZINE MALEATE [Concomitant]
  8. HYDROCORTISONE -CORTEF- [Concomitant]
  9. DILTIAZEM [Concomitant]
  10. METOPROLOL SUCCINATE EXTENDED RELEASE [Concomitant]
  11. LYRICA [Concomitant]
  12. GLYBURIDE [Concomitant]
  13. SOLIFENACIN SUCCINATE -VESICARE- [Concomitant]
  14. LEUPROLIDE -LUPRON DEPOT- [Concomitant]

REACTIONS (4)
  - DEHYDRATION [None]
  - DYSARTHRIA [None]
  - FALL [None]
  - HYPOTENSION [None]
